FAERS Safety Report 4381628-4 (Version None)
Quarter: 2004Q2

REPORT INFORMATION
  Report Type: 
  Country: None (occurrence: None)
  Receive Date: 20040615
  Receipt Date: 20040603
  Transmission Date: 20050107
  Serious: Yes (Other)
  Sender: FDA-Public Use
  Company Number: HQWYE298407JUN04

PATIENT
  Age: 57 Year
  Sex: Female
  Weight: 52.21 kg

DRUGS (1)
  1. ALAVERT [Suspect]
     Indication: HYPERSENSITIVITY
     Dosage: 1 TAB AS NEEDED, ORAL
     Route: 048
     Dates: end: 20040603

REACTIONS (1)
  - BLOOD PRESSURE INCREASED [None]
